FAERS Safety Report 25317007 (Version 1)
Quarter: 2025Q2

REPORT INFORMATION
  Report Type: Report from Study
  Country: US (occurrence: US)
  Receive Date: 20250515
  Receipt Date: 20250515
  Transmission Date: 20250716
  Serious: Yes (Other)
  Sender: ABBVIE
  Company Number: US-ABBVIE-6229676

PATIENT
  Age: 72 Year
  Sex: Female

DRUGS (2)
  1. HUMIRA [Suspect]
     Active Substance: ADALIMUMAB
     Indication: Rheumatoid arthritis
     Route: 058
     Dates: start: 20240913, end: 20250401
  2. HUMIRA [Suspect]
     Active Substance: ADALIMUMAB
     Route: 058
     Dates: start: 20240913

REACTIONS (11)
  - Chondropathy [Unknown]
  - Back pain [Unknown]
  - Bronchitis [Recovered/Resolved]
  - Nasopharyngitis [Unknown]
  - Arthralgia [Unknown]
  - Hyperhidrosis [Recovering/Resolving]
  - Weight decreased [Recovering/Resolving]
  - Hot flush [Recovered/Resolved]
  - Feeling cold [Recovered/Resolved]
  - Pain [Unknown]
  - Joint swelling [Unknown]

NARRATIVE: CASE EVENT DATE: 20250402
